FAERS Safety Report 12689723 (Version 2)
Quarter: 2017Q1

REPORT INFORMATION
  Report Type: Spontaneous
  Country: BR (occurrence: BR)
  Receive Date: 20160826
  Receipt Date: 20170117
  Transmission Date: 20170428
  Serious: Yes (Disabling, Other)
  Sender: FDA-Public Use
  Company Number: BR-ALEXION PHARMACEUTICALS INC-A201606220

PATIENT
  Age: 68 Year
  Sex: Female

DRUGS (2)
  1. SOLIRIS [Suspect]
     Active Substance: ECULIZUMAB
     Indication: PAROXYSMAL NOCTURNAL HAEMOGLOBINURIA
     Dosage: 600 MG, QW
     Route: 042
     Dates: start: 20101109, end: 20101130
  2. SOLIRIS [Suspect]
     Active Substance: ECULIZUMAB
     Dosage: 900 MG, Q2W
     Route: 042
     Dates: start: 20101207, end: 20160722

REACTIONS (11)
  - Haemolysis [Unknown]
  - Haemoglobinuria [Unknown]
  - Asthenia [Not Recovered/Not Resolved]
  - Product supply issue [Unknown]
  - Dysphagia [Unknown]
  - Haemolysis [Not Recovered/Not Resolved]
  - Blood iron increased [Unknown]
  - Abdominal pain [Unknown]
  - Dysuria [Unknown]
  - Serum ferritin increased [Unknown]
  - Tracheal pain [Unknown]

NARRATIVE: CASE EVENT DATE: 20160804
